FAERS Safety Report 4921591-8 (Version None)
Quarter: 2006Q1

REPORT INFORMATION
  Report Type: 
  Country: None (occurrence: None)
  Receive Date: 20060224
  Receipt Date: 20020415
  Transmission Date: 20060701
  Serious: No
  Sender: FDA-Public Use
  Company Number: US-BRISTOL-MYERS SQUIBB COMPANY-11823291

PATIENT
  Age: 26 Year
  Sex: Female

DRUGS (3)
  1. MONISTAT-1 VAG OINT 6.5% [Suspect]
     Indication: VULVOVAGINAL MYCOTIC INFECTION
     Route: 067
     Dates: start: 20020414, end: 20020414
  2. MONISTAT-1 VAG OINT 6.5% [Suspect]
     Route: 067
     Dates: start: 20050404, end: 20050404
  3. CONTRACEPTIVE [Concomitant]
     Route: 048

REACTIONS (4)
  - GENITAL PRURITUS FEMALE [None]
  - VAGINAL BURNING SENSATION [None]
  - VAGINAL SWELLING [None]
  - VULVOVAGINAL DISCOMFORT [None]
